FAERS Safety Report 4983571-6 (Version None)
Quarter: 2006Q2

REPORT INFORMATION
  Report Type: 
  Country: None (occurrence: None)
  Receive Date: 20060419
  Receipt Date: 20060406
  Transmission Date: 20061013
  Serious: Yes (Hospitalization, Other)
  Sender: FDA-Public Use
  Company Number: 2003JP007340

PATIENT
  Age: 52 Year
  Sex: Male

DRUGS (7)
  1. PROGRAF [Suspect]
     Indication: RENAL TRANSPLANT
     Dosage: ORAL
     Route: 048
     Dates: start: 20010801, end: 20030519
  2. PHENOBAL(PHENOBARBITAL) PER ORAL NOS [Suspect]
     Dosage: ORAL
     Route: 048
     Dates: start: 20030325, end: 20030512
  3. AMLODIN (AMLODIPINE BESILATE) PER ORAL NOS [Concomitant]
  4. LOSARTAN POTASSIUM [Concomitant]
  5. URINORM (BENZBROMARONE) PER ORAL NOS [Concomitant]
  6. HYPEN (ETODOLAC) PER ORAL NOS [Concomitant]
  7. LASIX (FUROSEMIDE) PER ORAL NOS [Concomitant]

REACTIONS (12)
  - BLOOD BETA-D-GLUCAN INCREASED [None]
  - CENTRAL NERVOUS SYSTEM LYMPHOMA [None]
  - CONVULSION [None]
  - CYTOMEGALOVIRUS ANTIGEN POSITIVE [None]
  - DIFFUSE LARGE B-CELL LYMPHOMA [None]
  - OSTEITIS [None]
  - PIGMENTATION DISORDER [None]
  - SCAB [None]
  - STAPHYLOCOCCAL BACTERAEMIA [None]
  - THERAPY NON-RESPONDER [None]
  - TOXIC EPIDERMAL NECROLYSIS [None]
  - TOXIC SKIN ERUPTION [None]
